FAERS Safety Report 9633032 (Version 1)
Quarter: 2013Q4

REPORT INFORMATION
  Report Type: Report from Study
  Country: US (occurrence: US)
  Receive Date: 20131018
  Receipt Date: 20131018
  Transmission Date: 20140711
  Serious: No
  Sender: FDA-Public Use
  Company Number: US-BAXTER-2013BAX040144

PATIENT
  Age: 64 Year
  Sex: Male

DRUGS (22)
  1. GAMMAGARD LIQUID [Suspect]
     Indication: ENCEPHALITIS
     Dosage: 50 GRAMS, NOT REPORTED IF TOTAL CUMULATIVE DOSE OF ALL THREE INFUSIONS OR IF IT WAS THE UNIT DOSE OF
     Route: 042
     Dates: start: 20130912
  2. GAMMAGARD LIQUID [Suspect]
     Indication: OFF LABEL USE
     Dosage: 50 GRAMS, NOT REPORTED IF TOTAL CUMULATIVE DOSE OF ALL THREE INFUSIONS OR IF IT WAS THE UNIT DOSE OF
     Route: 042
     Dates: start: 20130914
  3. GAMMAGARD LIQUID [Suspect]
     Dosage: 50 GRAMS, NOT REPORTED IF TOTAL CUMULATIVE DOSE OF ALL THREE INFUSIONS OR IF IT WAS THE UNIT DOSE OF
     Route: 042
     Dates: start: 20130915
  4. CARBAMAZEPINE [Concomitant]
     Indication: CONVULSION
     Route: 065
  5. AMLODIPINE [Concomitant]
     Indication: PRODUCT USED FOR UNKNOWN INDICATION
     Route: 065
  6. DOCUSATE SODIUM [Concomitant]
     Indication: PRODUCT USED FOR UNKNOWN INDICATION
     Route: 065
  7. PRILOSEC [Concomitant]
     Indication: PRODUCT USED FOR UNKNOWN INDICATION
     Route: 065
  8. THIAMINE [Concomitant]
     Indication: PRODUCT USED FOR UNKNOWN INDICATION
     Route: 065
  9. FOLIC ACID [Concomitant]
     Indication: PRODUCT USED FOR UNKNOWN INDICATION
     Route: 065
  10. CENTRUM SILVER 50+ [Concomitant]
     Indication: PRODUCT USED FOR UNKNOWN INDICATION
     Route: 065
  11. FLOMAX [Concomitant]
     Indication: PRODUCT USED FOR UNKNOWN INDICATION
     Dosage: 2 TABS EVERY NIGHT
     Route: 065
  12. RISPERIDONE [Concomitant]
     Indication: PRODUCT USED FOR UNKNOWN INDICATION
     Route: 065
  13. CLONAZEPAM [Concomitant]
     Indication: PRODUCT USED FOR UNKNOWN INDICATION
     Route: 065
  14. TYLENOL [Concomitant]
     Indication: PREMEDICATION
     Dosage: ONE HOUR BEFORE GGL INFUSION
     Route: 048
     Dates: start: 20130912, end: 20130912
  15. TYLENOL [Concomitant]
     Dosage: ONE HOUR BEFORE GGL INFUSION
     Route: 048
     Dates: start: 20130914, end: 20130914
  16. TYLENOL [Concomitant]
     Dosage: ONE HOUR BEFORE GGL INFUSION
     Route: 048
     Dates: start: 20130915, end: 20130915
  17. BENADRYL [Concomitant]
     Indication: PREMEDICATION
     Dosage: ONE HOUR BEFORE GGL INFUSION
     Route: 048
     Dates: start: 20130912, end: 20130912
  18. BENADRYL [Concomitant]
     Dosage: ONE HOUR BEFORE GGL INFUSION
     Route: 048
     Dates: start: 20130914, end: 20130914
  19. BENADRYL [Concomitant]
     Dosage: ONE HOUR BEFORE GGL INFUSION
     Route: 048
     Dates: start: 20130915, end: 20130915
  20. DECADRON [Concomitant]
     Indication: PREMEDICATION
     Dosage: ONE HOUR BEFORE GGL INFUSION
     Route: 048
     Dates: start: 20130912, end: 20130912
  21. DECADRON [Concomitant]
     Dosage: ONE HOUR BEFORE GGL INFUSION
     Route: 048
     Dates: start: 20130914, end: 20130914
  22. DECADRON [Concomitant]
     Dosage: ONE HOUR BEFORE GGL INFUSION
     Route: 048
     Dates: start: 20130915, end: 20130915

REACTIONS (17)
  - Extravasation [Unknown]
  - Fatigue [Recovered/Resolved]
  - Pallor [Recovered/Resolved]
  - Blood pressure increased [Recovered/Resolved]
  - Dizziness [Recovered/Resolved]
  - Dyspnoea [Not Recovered/Not Resolved]
  - Headache [Unknown]
  - Infusion site rash [Unknown]
  - Rash [Recovered/Resolved]
  - Joint swelling [Recovered/Resolved]
  - Skin discolouration [Not Recovered/Not Resolved]
  - Rash papular [Not Recovered/Not Resolved]
  - Pruritus [Not Recovered/Not Resolved]
  - Skin exfoliation [Not Recovered/Not Resolved]
  - Skin exfoliation [Not Recovered/Not Resolved]
  - Eyelids pruritus [Unknown]
  - Erythema [Not Recovered/Not Resolved]
